FAERS Safety Report 11433154 (Version 1)
Quarter: 2015Q3

REPORT INFORMATION
  Report Type: Spontaneous
  Country: US (occurrence: US)
  Receive Date: 20150830
  Receipt Date: 20150830
  Transmission Date: 20151125
  Serious: No
  Sender: FDA-Public Use
  Company Number: US-ASTRAZENECA-2015SE79881

PATIENT
  Age: 59 Year
  Sex: Male
  Weight: 56.7 kg

DRUGS (3)
  1. MOVANTIK [Suspect]
     Active Substance: NALOXEGOL OXALATE
     Indication: RENAL DISORDER
     Route: 048
     Dates: start: 20150815
  2. MOVANTIK [Suspect]
     Active Substance: NALOXEGOL OXALATE
     Indication: ABDOMINAL DISCOMFORT
     Route: 048
     Dates: start: 20150815
  3. MOVANTIK [Suspect]
     Active Substance: NALOXEGOL OXALATE
     Indication: URINARY TRACT DISORDER
     Route: 048
     Dates: start: 20150815

REACTIONS (3)
  - Off label use [Unknown]
  - Product use issue [Unknown]
  - Headache [Recovered/Resolved]

NARRATIVE: CASE EVENT DATE: 20150815
